FAERS Safety Report 17917413 (Version 4)
Quarter: 2020Q3

REPORT INFORMATION
  Report Type: Report from Study
  Country: AU (occurrence: AU)
  Receive Date: 20200619
  Receipt Date: 20200731
  Transmission Date: 20201103
  Serious: Yes (Hospitalization)
  Sender: FDA-Public Use
  Company Number: AU-EISAI MEDICAL RESEARCH-EC-2020-076121

PATIENT
  Age: 64 Year
  Sex: Female
  Weight: 69.7 kg

DRUGS (9)
  1. ENDONE [Concomitant]
     Active Substance: OXYCODONE HYDROCHLORIDE
     Dates: start: 20200526
  2. LENVATINIB [Suspect]
     Active Substance: LENVATINIB
     Indication: NON-SMALL CELL LUNG CANCER METASTATIC
     Route: 048
     Dates: start: 20200605, end: 2020
  3. PEMBROLIZUMAB. [Suspect]
     Active Substance: PEMBROLIZUMAB
     Indication: NON-SMALL CELL LUNG CANCER METASTATIC
     Route: 042
     Dates: start: 20200605, end: 20200605
  4. CARBOPLATIN. [Suspect]
     Active Substance: CARBOPLATIN
     Dosage: AREA UNDER CURVE (AUC) 5MG/ML/MIN
     Route: 042
     Dates: start: 20200703
  5. CARBOPLATIN. [Suspect]
     Active Substance: CARBOPLATIN
     Indication: NON-SMALL CELL LUNG CANCER METASTATIC
     Dosage: AREA UNDER CURVE (AUC) 5MG/ML/MIN
     Route: 042
     Dates: start: 20200605, end: 20200605
  6. PEMETREXED. [Suspect]
     Active Substance: PEMETREXED
     Indication: NON-SMALL CELL LUNG CANCER METASTATIC
     Route: 042
     Dates: start: 20200605, end: 20200605
  7. PEMBROLIZUMAB. [Suspect]
     Active Substance: PEMBROLIZUMAB
     Route: 042
     Dates: start: 20200703
  8. PEMETREXED. [Suspect]
     Active Substance: PEMETREXED
     Route: 042
     Dates: start: 20200703
  9. TAPENTADOL [Concomitant]
     Active Substance: TAPENTADOL
     Dates: start: 20200526

REACTIONS (1)
  - Lethargy [Recovered/Resolved]

NARRATIVE: CASE EVENT DATE: 20200611
